FAERS Safety Report 7861294-3 (Version None)
Quarter: 2011Q4

REPORT INFORMATION
  Report Type: 
  Country: None (occurrence: None)
  Receive Date: 20111027
  Receipt Date: 20111018
  Transmission Date: 20120403
  Serious: Yes (Other)
  Sender: FDA-Public Use
  Company Number: ES-TEVA-306034ISR

PATIENT
  Age: 80 Year
  Sex: Male

DRUGS (5)
  1. ESCITALOPRAM [Concomitant]
     Indication: DEPRESSION
     Dosage: 10 MILLIGRAM;
     Route: 048
  2. AZILECT [Suspect]
     Indication: PARKINSON'S DISEASE
     Dosage: 1 MILLIGRAM;
     Route: 048
     Dates: start: 20100623, end: 20110114
  3. EUCREAS (METFORMIN/VILDAGLIPTIN) [Concomitant]
     Indication: DIABETES MELLITUS
     Dosage: 50/850 MG
     Route: 048
  4. SINEMET [Concomitant]
     Indication: PARKINSON'S DISEASE
     Dosage: 25/50 MG
     Route: 048
  5. OMEPRAZOLE [Concomitant]
     Route: 048

REACTIONS (1)
  - THROMBOCYTOPENIA [None]
